FAERS Safety Report 5990152-4 (Version None)
Quarter: 2008Q4

REPORT INFORMATION
  Report Type: 
  Country: None (occurrence: None)
  Receive Date: 20081211
  Receipt Date: 20081201
  Transmission Date: 20090506
  Serious: Yes (Other)
  Sender: FDA-Public Use
  Company Number: PHHY2008IT30470

PATIENT
  Sex: Male

DRUGS (2)
  1. ZOMETA [Suspect]
     Indication: METASTASES TO BONE
     Dosage: 4 MG
     Route: 042
     Dates: start: 20040220, end: 20050804
  2. LEUPROLIDE ACETATE [Concomitant]
     Dosage: 11.25 MG
     Route: 030
     Dates: start: 20031101, end: 20081128

REACTIONS (1)
  - OSTEONECROSIS [None]
